FAERS Safety Report 17315022 (Version 3)
Quarter: 2021Q2

REPORT INFORMATION
  Report Type: Report from Study
  Country: MX (occurrence: MX)
  Receive Date: 20200124
  Receipt Date: 20210427
  Transmission Date: 20210716
  Serious: Yes (Hospitalization, Other)
  Sender: FDA-Public Use
  Company Number: NVSC2020MX014058

PATIENT
  Sex: Male
  Weight: 72 kg

DRUGS (6)
  1. DIOVAN [Suspect]
     Active Substance: VALSARTAN
     Indication: HYPERTENSION
     Dosage: 2 DF, QD, (160 MG, EACH)
     Route: 048
  2. DIOVAN [Suspect]
     Active Substance: VALSARTAN
     Dosage: 1 DF, BID, (160 MG)
     Route: 048
     Dates: start: 201912
  3. AMIODARONA [Concomitant]
     Active Substance: AMIODARONE
     Indication: ARRHYTHMIA
     Dosage: 1 DF, QD
     Route: 048
  4. DIOVAN [Suspect]
     Active Substance: VALSARTAN
     Dosage: 1 DF, QD, (80 MG) (2 YEARS AGO)
     Route: 048
  5. MINIPRESS [Concomitant]
     Active Substance: PRAZOSIN HYDROCHLORIDE
     Indication: HYPERTENSION
     Dosage: 3 DF, QD
     Route: 048
  6. VERSALVER [Concomitant]
     Indication: HYPERTENSION
     Dosage: 1 DF, QD (7 MONTHS AGO)
     Route: 048

REACTIONS (7)
  - Blood pressure fluctuation [Unknown]
  - Off label use [Unknown]
  - Dizziness [Unknown]
  - Embolism [Unknown]
  - Malaise [Unknown]
  - Adrenal disorder [Not Recovered/Not Resolved]
  - Blood pressure increased [Unknown]
